FAERS Safety Report 8833148 (Version 2)
Quarter: 2012Q4

REPORT INFORMATION
  Report Type: 
  Country: DE (occurrence: DE)
  Receive Date: 20121010
  Receipt Date: 20121030
  Transmission Date: 20130627
  Serious: Yes (Hospitalization)
  Sender: FDA-Public Use
  Company Number: DE-B.I. PHARMACEUTICALS,INC./RIDGEFIELD-2012-DE-02357DE

PATIENT
  Age: 82 Year
  Sex: Male
  Weight: 75 kg

DRUGS (8)
  1. PRADAXA [Suspect]
     Indication: ATRIAL FIBRILLATION
     Dosage: 220 mg
     Dates: start: 20111026, end: 20120928
  2. PRADAXA [Suspect]
     Dosage: 300 mg
     Dates: start: 20120929
  3. NOVO RAPID [Concomitant]
     Indication: TYPE 1 DIABETES MELLITUS
     Dosage: injection according to plan
  4. LANTUS [Concomitant]
     Indication: TYPE 1 DIABETES MELLITUS
     Dosage: 34 U
  5. BELOC [Concomitant]
     Indication: HYPERTENSION
     Dosage: 95 NR
  6. SIMVASTATIN [Concomitant]
     Indication: HYPERTENSION
     Dosage: 10 NR
  7. DIGIMERCK MINOR [Concomitant]
     Indication: CARDIAC FAILURE
     Dosage: 0.07 NR
  8. RAMIPRIL [Concomitant]
     Indication: CARDIAC FAILURE
     Dosage: 10 NR

REACTIONS (2)
  - Transient ischaemic attack [Recovered/Resolved]
  - Drug prescribing error [Not Recovered/Not Resolved]
